FAERS Safety Report 10622129 (Version 2)
Quarter: 2014Q4

REPORT INFORMATION
  Report Type: Spontaneous
  Country: US (occurrence: US)
  Receive Date: 20141203
  Receipt Date: 20141203
  Transmission Date: 20150529
  Serious: No
  Sender: FDA-Public Use
  Company Number: US-GLAXOSMITHKLINE-US2014028862

PATIENT

DRUGS (1)
  1. NICOTINE UNKNOWN BRAND INHALATIONAL POWDER [Suspect]
     Active Substance: NICOTINE
     Dosage: DOSAGE FORM: INHALATION
     Route: 055
     Dates: start: 20140110, end: 201403

REACTIONS (4)
  - Oropharyngeal pain [Unknown]
  - Throat irritation [Unknown]
  - Dizziness [Recovered/Resolved]
  - Drug ineffective [Recovered/Resolved]

NARRATIVE: CASE EVENT DATE: 2014
